FAERS Safety Report 18612354 (Version 1)
Quarter: 2020Q4

REPORT INFORMATION
  Report Type: Spontaneous
  Country: US (occurrence: US)
  Receive Date: 20201214
  Receipt Date: 20201214
  Transmission Date: 20210114
  Serious: Yes (Other)
  Sender: FDA-Public Use
  Company Number: US-ENDO PHARMACEUTICALS INC-2020-007734

PATIENT
  Age: 72 Year
  Sex: Male

DRUGS (1)
  1. IBUPROFEN. [Suspect]
     Active Substance: IBUPROFEN
     Indication: ARTHRALGIA
     Dosage: 600 MG, UNKNOWN
     Route: 065
     Dates: start: 20201114, end: 20201114

REACTIONS (4)
  - Peripheral swelling [Recovered/Resolved]
  - Mouth swelling [Recovered/Resolved]
  - Heart rate increased [Recovered/Resolved]
  - Urticaria [Recovered/Resolved]

NARRATIVE: CASE EVENT DATE: 20201114
